FAERS Safety Report 7231579-2 (Version None)
Quarter: 2011Q1

REPORT INFORMATION
  Report Type: 
  Country: None (occurrence: None)
  Receive Date: 20110118
  Receipt Date: 20110107
  Transmission Date: 20110831
  Serious: Yes (Hospitalization)
  Sender: FDA-Public Use
  Company Number: BR-ASTRAZENECA-2011SE01673

PATIENT
  Age: 83 Year
  Sex: Female
  Weight: 75 kg

DRUGS (6)
  1. SEROQUEL [Suspect]
     Indication: DEMENTIA ALZHEIMER'S TYPE
     Route: 048
     Dates: start: 20090101, end: 20101001
  2. SEROQUEL [Suspect]
     Dosage: BID
     Route: 048
     Dates: start: 20101001
  3. VENALOT [Concomitant]
     Indication: OEDEMA PERIPHERAL
     Route: 048
     Dates: start: 20000101
  4. PROPRANOLOL [Suspect]
     Indication: OEDEMA PERIPHERAL
     Route: 048
     Dates: start: 19900101
  5. DAFLON [Concomitant]
     Indication: OEDEMA PERIPHERAL
     Route: 048
     Dates: start: 20000101
  6. ARIMIDEX [Suspect]
     Indication: BREAST CANCER
     Route: 048
     Dates: start: 20060101, end: 20090101

REACTIONS (7)
  - HEPATIC CIRRHOSIS [None]
  - DEMENTIA ALZHEIMER'S TYPE [None]
  - CHOLELITHIASIS [None]
  - HEPATOMEGALY [None]
  - BREAST CANCER [None]
  - OFF LABEL USE [None]
  - DYSPEPSIA [None]
